FAERS Safety Report 19075010 (Version 6)
Quarter: 2021Q3

REPORT INFORMATION
  Report Type: Report from Study
  Country: US (occurrence: US)
  Receive Date: 20210331
  Receipt Date: 20210820
  Transmission Date: 20211014
  Serious: No
  Sender: FDA-Public Use
  Company Number: US-B.I. PHARMACEUTICALS,INC./RIDGEFIELD-2021-BI-079457

PATIENT
  Age: 70 Year
  Sex: Male

DRUGS (5)
  1. GLIPIZIDE. [Concomitant]
     Active Substance: GLIPIZIDE
     Indication: PRODUCT USED FOR UNKNOWN INDICATION
  2. NEXIUM I.V. [Concomitant]
     Active Substance: ESOMEPRAZOLE SODIUM
     Indication: PRODUCT USED FOR UNKNOWN INDICATION
     Route: 065
  3. METFORMIN [Concomitant]
     Active Substance: METFORMIN HYDROCHLORIDE
     Indication: PRODUCT USED FOR UNKNOWN INDICATION
  4. OFEV [Suspect]
     Active Substance: NINTEDANIB
     Dates: start: 20210624
  5. OFEV [Suspect]
     Active Substance: NINTEDANIB
     Indication: IDIOPATHIC PULMONARY FIBROSIS
     Dosage: OFEV 150MG TWICE A DAY?150MG BID
     Route: 048
     Dates: start: 20201231, end: 20210413

REACTIONS (20)
  - Cognitive disorder [Not Recovered/Not Resolved]
  - Nausea [Not Recovered/Not Resolved]
  - Diarrhoea [Not Recovered/Not Resolved]
  - Thirst [Not Recovered/Not Resolved]
  - Flatulence [Not Recovered/Not Resolved]
  - Dyspepsia [Not Recovered/Not Resolved]
  - Cough [Unknown]
  - Diarrhoea [Recovering/Resolving]
  - Productive cough [Recovering/Resolving]
  - Pyrexia [Unknown]
  - Vomiting [Not Recovered/Not Resolved]
  - Hepatic enzyme increased [Unknown]
  - Muscle spasms [Not Recovered/Not Resolved]
  - Glycosylated haemoglobin increased [Not Recovered/Not Resolved]
  - Flatulence [Recovering/Resolving]
  - Fatigue [Not Recovered/Not Resolved]
  - Depression [Not Recovered/Not Resolved]
  - Constipation [Not Recovered/Not Resolved]
  - Eructation [Recovering/Resolving]
  - Eructation [Not Recovered/Not Resolved]

NARRATIVE: CASE EVENT DATE: 20201231
